FAERS Safety Report 19739471 (Version 1)
Quarter: 2021Q3

REPORT INFORMATION
  Report Type: Spontaneous
  Country: US (occurrence: US)
  Receive Date: 20210820
  Receipt Date: 20210820
  Transmission Date: 20211014
  Serious: No
  Sender: FDA-Public Use
  Company Number: None

PATIENT

DRUGS (2)
  1. RECOTHROM [Suspect]
     Active Substance: THROMBIN ALFA
     Route: 061
  2. ANTITHROMBIN III [Suspect]
     Active Substance: ANTITHROMBIN III HUMAN

REACTIONS (3)
  - Wrong product administered [None]
  - Product design issue [None]
  - Product name confusion [None]
